FAERS Safety Report 23790419 (Version 1)
Quarter: 2024Q2

REPORT INFORMATION
  Report Type: Spontaneous
  Country: US (occurrence: US)
  Receive Date: 20240427
  Receipt Date: 20240427
  Transmission Date: 20240715
  Serious: No
  Sender: FDA-Public Use
  Company Number: US-GSK-US2024049761

PATIENT
  Age: 6 Decade
  Sex: Female

DRUGS (1)
  1. MEPOLIZUMAB [Suspect]
     Active Substance: MEPOLIZUMAB
     Indication: Interleukin level
     Dosage: UNK

REACTIONS (2)
  - Eosinophil count increased [Unknown]
  - Off label use [Unknown]
